FAERS Safety Report 16094494 (Version 1)
Quarter: 2019Q1

REPORT INFORMATION
  Report Type: Spontaneous
  Country: US (occurrence: US)
  Receive Date: 20190320
  Receipt Date: 20190320
  Transmission Date: 20190418
  Serious: No
  Sender: FDA-Public Use
  Company Number: US-PFIZER INC-2019118462

PATIENT
  Age: 60 Year
  Sex: Female
  Weight: 53.61 kg

DRUGS (1)
  1. GABAPENTIN. [Suspect]
     Active Substance: GABAPENTIN
     Dosage: 2100 MG, DAILY (TWO IN THE MORNING, TWO IN THE AFTERNOON, TWO AT NIGHT, ANOTHER IN MIDDLE OF NIGHT)

REACTIONS (2)
  - Drug ineffective [Unknown]
  - Product use issue [Unknown]
